FAERS Safety Report 22594359 (Version 1)
Quarter: 2023Q2

REPORT INFORMATION
  Report Type: Spontaneous
  Country: JP (occurrence: JP)
  Receive Date: 20230613
  Receipt Date: 20230613
  Transmission Date: 20230722
  Serious: Yes (Hospitalization)
  Sender: FDA-Public Use
  Company Number: JP-TEVA-2023-JP-2896800

PATIENT
  Age: 40 Year
  Sex: Male

DRUGS (6)
  1. PREDNISOLONE [Suspect]
     Active Substance: PREDNISOLONE
     Indication: Asthma
     Route: 065
  2. INSULIN NOS [Suspect]
     Active Substance: INSULIN NOS
     Indication: Diabetic ketoacidosis
     Route: 041
  3. INSULIN ASPART [Concomitant]
     Active Substance: INSULIN ASPART
     Indication: Diabetes mellitus
     Dosage: 10 UNITS BEFORE EACH MEAL; LATER, THE DOSE WAS REDUCED
     Route: 065
  4. Insulin-glargine/lixisenatide [Concomitant]
     Indication: Diabetes mellitus
     Route: 065
  5. SODIUM BICARBONATE [Concomitant]
     Active Substance: SODIUM BICARBONATE
     Indication: Acidosis
     Route: 065
  6. SODIUM BICARBONATE [Concomitant]
     Active Substance: SODIUM BICARBONATE
     Indication: Hyperkalaemia

REACTIONS (2)
  - Diabetic ketoacidosis [Recovered/Resolved]
  - Hyperlactacidaemia [Recovered/Resolved]
